FAERS Safety Report 9169359 (Version 1)
Quarter: 2013Q1

REPORT INFORMATION
  Report Type: Report from Study
  Country: AU (occurrence: AU)
  Receive Date: 20130318
  Receipt Date: 20130318
  Transmission Date: 20140127
  Serious: Yes (Disabling, Other)
  Sender: FDA-Public Use
  Company Number: AU-ROCHE-1120615

PATIENT
  Sex: Male

DRUGS (21)
  1. ACTEMRA [Suspect]
     Indication: RHEUMATOID ARTHRITIS
     Route: 042
     Dates: start: 20120206, end: 20120731
  2. VALIUM [Concomitant]
     Route: 048
  3. VALIUM [Concomitant]
     Route: 048
  4. ASPIRIN [Concomitant]
     Route: 048
     Dates: start: 2010
  5. ENDEP [Concomitant]
     Indication: PAIN
     Route: 048
     Dates: start: 2010
  6. ENDEP [Concomitant]
     Route: 048
  7. ACTONEL [Concomitant]
     Route: 048
     Dates: start: 2011
  8. ACTONEL [Concomitant]
     Route: 065
  9. PLAQUENIL [Concomitant]
     Route: 048
     Dates: start: 2011
  10. METHOTREXATE [Concomitant]
     Indication: RHEUMATOID ARTHRITIS
     Route: 048
     Dates: start: 2006
  11. FOLIC ACID [Concomitant]
     Route: 048
     Dates: start: 2006
  12. NEXIUM [Concomitant]
     Indication: DIVERTICULITIS
     Route: 048
     Dates: start: 2006
  13. CELEBREX [Concomitant]
     Route: 048
     Dates: start: 2006
  14. PREDNISOLONE [Concomitant]
     Route: 048
     Dates: start: 2006
  15. LIPITOR [Concomitant]
     Indication: BLOOD CHOLESTEROL
     Route: 048
     Dates: start: 2008
  16. MICARDIS [Concomitant]
     Indication: HYPERTENSION
     Route: 048
     Dates: start: 2011
  17. OXYCONTIN [Concomitant]
     Indication: PAIN
     Route: 048
     Dates: start: 2010
  18. OXYCONTIN [Concomitant]
     Route: 048
  19. OXYCONTIN [Concomitant]
     Route: 048
  20. ENDONE [Concomitant]
     Indication: PAIN
     Route: 048
     Dates: start: 2010
  21. ENDONE [Concomitant]
     Route: 048

REACTIONS (3)
  - Intervertebral disc protrusion [Recovering/Resolving]
  - Pain [Not Recovered/Not Resolved]
  - Bone density decreased [Unknown]
